FAERS Safety Report 18014415 (Version 1)
Quarter: 2020Q3

REPORT INFORMATION
  Report Type: Spontaneous
  Country: DE (occurrence: DE)
  Receive Date: 20200713
  Receipt Date: 20200713
  Transmission Date: 20201103
  Serious: Yes (Other)
  Sender: FDA-Public Use
  Company Number: NVSC2020DE192469

PATIENT
  Age: 1 Day
  Sex: Male
  Weight: 1.97 kg

DRUGS (2)
  1. PREDNISOLONE. [Suspect]
     Active Substance: PREDNISOLONE
     Indication: FOETAL EXPOSURE DURING PREGNANCY
     Dosage: MATERNAL DOSE: 60 [MG/D (BIS 20) ]/ START WITH 60 MG/D, SLOW REDCUTION, 20 MG AT DELIVERY
     Route: 064
  2. STELARA [Suspect]
     Active Substance: USTEKINUMAB
     Indication: FOETAL EXPOSURE DURING PREGNANCY
     Dosage: MATERNAL DOSE: 45 (MG/8WK)
     Route: 064

REACTIONS (9)
  - Neonatal seizure [Unknown]
  - Cryptorchism [Unknown]
  - Foetal exposure during pregnancy [Unknown]
  - Hypotonia neonatal [Unknown]
  - Neonatal respiratory distress syndrome [Recovered/Resolved]
  - Rotavirus infection [Recovered/Resolved with Sequelae]
  - Atrial septal defect [Unknown]
  - Leukoencephalopathy [Not Recovered/Not Resolved]
  - Premature baby [Recovering/Resolving]

NARRATIVE: CASE EVENT DATE: 20190426
